FAERS Safety Report 11402423 (Version 1)
Quarter: 2015Q3

REPORT INFORMATION
  Report Type: Spontaneous
  Country: US (occurrence: US)
  Receive Date: 20150821
  Receipt Date: 20150821
  Transmission Date: 20151125
  Serious: No
  Sender: FDA-Public Use
  Company Number: US-ROCHE-1322402

PATIENT
  Age: 61 Year
  Sex: Male
  Weight: 91.71 kg

DRUGS (3)
  1. TELAPREVIR [Suspect]
     Active Substance: TELAPREVIR
     Indication: CHRONIC HEPATITIS C
     Route: 065
     Dates: start: 20131212
  2. COPEGUS [Suspect]
     Active Substance: RIBAVIRIN
     Indication: CHRONIC HEPATITIS C
     Dosage: DIVIDED DOSES 600/400
     Route: 065
     Dates: start: 20131212
  3. PEGASYS [Suspect]
     Active Substance: PEGINTERFERON ALFA-2A
     Indication: CHRONIC HEPATITIS C
     Route: 058
     Dates: start: 20131212

REACTIONS (11)
  - Tremor [Unknown]
  - Pain [Unknown]
  - Drug dose omission [Unknown]
  - Chills [Unknown]
  - Nausea [Unknown]
  - Dysgeusia [Unknown]
  - Fatigue [Unknown]
  - Poor quality sleep [Unknown]
  - Pyrexia [Unknown]
  - Decreased appetite [Unknown]
  - Injection site pain [Unknown]

NARRATIVE: CASE EVENT DATE: 20131215
